FAERS Safety Report 4968291-6 (Version None)
Quarter: 2006Q2

REPORT INFORMATION
  Report Type: 
  Country: None (occurrence: None)
  Receive Date: 20060405
  Receipt Date: 20060327
  Transmission Date: 20061013
  Serious: Yes (Other)
  Sender: FDA-Public Use
  Company Number: 2006-03-1766

PATIENT
  Age: 46 Year
  Sex: Female

DRUGS (5)
  1. INTRON A [Suspect]
     Indication: MALIGNANT MELANOMA
     Dosage: SEE IMAGE,  INTRAVENOUS
     Route: 042
     Dates: start: 20060101, end: 20060123
  2. INTRON A [Suspect]
     Indication: MALIGNANT MELANOMA
     Dosage: SEE IMAGE,  INTRAVENOUS
     Route: 042
     Dates: start: 20051128, end: 20060320
  3. INTRON A [Suspect]
     Indication: MALIGNANT MELANOMA
     Dosage: SEE IMAGE,  INTRAVENOUS
     Route: 042
     Dates: start: 20060124, end: 20060320
  4. INTRON A [Suspect]
     Indication: MALIGNANT MELANOMA
     Dosage: SEE IMAGE,  INTRAVENOUS
     Route: 042
     Dates: start: 20051128
  5. AMLODIPINE [Concomitant]

REACTIONS (6)
  - EMBOLISM [None]
  - EYE PAIN [None]
  - RETINAL DEPOSITS [None]
  - RETINAL VASCULAR DISORDER [None]
  - TACHYCARDIA [None]
  - VISUAL DISTURBANCE [None]
